FAERS Safety Report 5239684-7 (Version None)
Quarter: 2007Q1

REPORT INFORMATION
  Report Type: 
  Country: None (occurrence: None)
  Receive Date: 20070216
  Receipt Date: 20070207
  Transmission Date: 20070707
  Serious: Yes (Hospitalization)
  Sender: FDA-Public Use
  Company Number: FR-SANOFI-SYNTHELABO-A02200602803

PATIENT
  Sex: Male

DRUGS (6)
  1. SULFASALAZINE [Concomitant]
     Route: 048
     Dates: start: 20060627
  2. NOVATREX [Concomitant]
     Route: 048
  3. PLAQUENIL [Suspect]
     Indication: PSORIATIC ARTHROPATHY
     Route: 048
     Dates: start: 20060601
  4. PARACETAMOL [Concomitant]
     Dosage: 2 G
     Route: 048
  5. CHONDROSULF [Concomitant]
     Route: 048
  6. BREXIN [Concomitant]
     Route: 048
     Dates: start: 20040101

REACTIONS (3)
  - ABDOMINAL PAIN UPPER [None]
  - BLOOD CREATINE PHOSPHOKINASE INCREASED [None]
  - NEUROMUSCULAR TOXICITY [None]
